FAERS Safety Report 21374487 (Version 2)
Quarter: 2023Q4

REPORT INFORMATION
  Report Type: Spontaneous
  Country: FR (occurrence: FR)
  Receive Date: 20220926
  Receipt Date: 20231020
  Transmission Date: 20240110
  Serious: Yes (Hospitalization)
  Sender: FDA-Public Use
  Company Number: FR-AFSSAPS-RN20221987

PATIENT
  Age: 81 Year
  Sex: Female

DRUGS (4)
  1. ALLOPURINOL [Suspect]
     Active Substance: ALLOPURINOL
     Indication: Hyperuricaemia
     Dosage: 300 MILLIGRAM, DAILY
     Route: 065
     Dates: start: 202204, end: 202206
  2. PANTOPRAZOLE [Suspect]
     Active Substance: PANTOPRAZOLE
     Indication: Prophylaxis against gastrointestinal ulcer
     Dosage: 40 MILLIGRAM, DAILY, 40MG PER DAY
     Route: 065
     Dates: start: 202204, end: 202206
  3. RITUXIMAB [Suspect]
     Active Substance: RITUXIMAB
     Indication: Marginal zone lymphoma
     Dosage: 1 DOSAGE FORM, ONE INFUSION PER WEEK
     Route: 065
     Dates: start: 20220516, end: 20220607
  4. CHLORAMBUCIL [Suspect]
     Active Substance: CHLORAMBUCIL
     Indication: Marginal zone lymphoma
     Dosage: 6 MILLIGRAM, DAILY, 6MG PER DAY
     Route: 065
     Dates: start: 202204, end: 202206

REACTIONS (1)
  - Rash maculo-papular [Recovered/Resolved]

NARRATIVE: CASE EVENT DATE: 20220607
